FAERS Safety Report 5341361-9 (Version None)
Quarter: 2007Q2

REPORT INFORMATION
  Report Type: 
  Country: None (occurrence: None)
  Receive Date: 20070530
  Receipt Date: 20070515
  Transmission Date: 20071010
  Serious: Yes (Other)
  Sender: FDA-Public Use
  Company Number: 4701

PATIENT
  Age: 16 Year
  Sex: Female

DRUGS (1)
  1. AMNESTEEM [Suspect]
     Indication: RHABDOMYOSARCOMA
     Dosage: 400 MG, PO
     Route: 048

REACTIONS (2)
  - NEOPLASM RECURRENCE [None]
  - RHABDOMYOSARCOMA [None]
